FAERS Safety Report 20051809 (Version 1)
Quarter: 2021Q4

REPORT INFORMATION
  Report Type: Spontaneous
  Country: US (occurrence: US)
  Receive Date: 20211110
  Receipt Date: 20211110
  Transmission Date: 20220303
  Serious: Yes (Life-Threatening, Hospitalization, Other)
  Sender: FDA-Public Use
  Company Number: US-SA-2021SA366283

PATIENT
  Age: 28 Year
  Sex: Male

DRUGS (7)
  1. ALEMTUZUMAB [Suspect]
     Active Substance: ALEMTUZUMAB
     Indication: Kidney transplant rejection
  2. THYMOGLOBULIN [Suspect]
     Active Substance: LAPINE T-LYMPHOCYTE IMMUNE GLOBULIN
     Indication: Immunosuppressant drug therapy
     Dosage: INFUSION
  3. BASILIXIMAB [Suspect]
     Active Substance: BASILIXIMAB
     Indication: Immunosuppressant drug therapy
     Dosage: UNK
  4. RITUXIMAB [Suspect]
     Active Substance: RITUXIMAB
     Indication: Donor specific antibody present
     Dosage: UNK
  5. CORTICOSTEROID NOS [Suspect]
     Active Substance: CORTICOSTEROID NOS
     Indication: Kidney transplant rejection
     Dosage: UNK
  6. IMMUNE GLOBULIN NOS [Concomitant]
     Active Substance: IMMUNE GLOBULIN NOS
     Indication: Donor specific antibody present
     Dosage: UNK
     Route: 042
  7. IMMUNE GLOBULIN NOS [Concomitant]
     Active Substance: IMMUNE GLOBULIN NOS
     Indication: Adenovirus infection
     Dosage: UNK
     Route: 042

REACTIONS (9)
  - Transplant dysfunction [Unknown]
  - Adenovirus infection [Unknown]
  - Pyrexia [Unknown]
  - Hydronephrosis [Unknown]
  - Pericardial effusion [Unknown]
  - Tubulointerstitial nephritis [Unknown]
  - Adenovirus interstitial nephritis [Unknown]
  - Anaphylactic reaction [Unknown]
  - Off label use [Unknown]
